FAERS Safety Report 9937575 (Version 1)
Quarter: 2014Q1

REPORT INFORMATION
  Report Type: Spontaneous
  Country: US (occurrence: US)
  Receive Date: 20140303
  Receipt Date: 20140303
  Transmission Date: 20141002
  Serious: No
  Sender: FDA-Public Use
  Company Number: US-BIOGENIDEC-2014BI019473

PATIENT
  Sex: Female

DRUGS (6)
  1. AVONEX [Suspect]
     Indication: MULTIPLE SCLEROSIS
     Route: 030
     Dates: start: 20110321
  2. ALENDRONATE SODIUM [Concomitant]
  3. ASPIRIN [Concomitant]
  4. NAPROXEN [Concomitant]
  5. OXYBUTYNIN CHLORIDE [Concomitant]
  6. TRIAMTERENE-HCTZ [Concomitant]

REACTIONS (1)
  - Tooth loss [Unknown]
